FAERS Safety Report 5533367-1 (Version None)
Quarter: 2007Q4

REPORT INFORMATION
  Report Type: 
  Country: None (occurrence: None)
  Receive Date: 20071204
  Receipt Date: 20071126
  Transmission Date: 20080405
  Serious: Yes (Hospitalization)
  Sender: FDA-Public Use
  Company Number: FR-ELI_LILLY_AND_COMPANY-FR200711005539

PATIENT
  Sex: Female
  Weight: 1.75 kg

DRUGS (4)
  1. PROZAC [Suspect]
     Route: 064
     Dates: end: 20070220
  2. NOCTRAN 10 [Concomitant]
     Route: 064
  3. LORAZEPAM [Concomitant]
     Route: 064
     Dates: end: 20070220
  4. LEVOTHYROX [Concomitant]
     Route: 064
     Dates: end: 20070220

REACTIONS (6)
  - DRUG EXPOSURE DURING PREGNANCY [None]
  - FOETAL GROWTH RETARDATION [None]
  - FOETAL HEART RATE DISORDER [None]
  - POLYHYDRAMNIOS [None]
  - PREMATURE BABY [None]
  - SMALL FOR DATES BABY [None]
